FAERS Safety Report 4847608-7 (Version None)
Quarter: 2005Q4

REPORT INFORMATION
  Report Type: 
  Country: None (occurrence: None)
  Receive Date: 20051205
  Receipt Date: 20051122
  Transmission Date: 20060501
  Serious: Yes (Other)
  Sender: FDA-Public Use
  Company Number: 2005159647

PATIENT
  Age: 61 Year
  Sex: Male
  Weight: 74 kg

DRUGS (4)
  1. VIAGRA [Suspect]
     Indication: ILL-DEFINED DISORDER
     Dosage: 20 MG (1 IN 1 D), ORAL
     Route: 048
     Dates: start: 20050801, end: 20051005
  2. TAMBOCOR [Concomitant]
  3. BISOPROLOL FUMARATE [Concomitant]
  4. MARCUMAR [Concomitant]

REACTIONS (2)
  - ATRIAL FIBRILLATION [None]
  - CONDITION AGGRAVATED [None]
